FAERS Safety Report 6738489-5 (Version None)
Quarter: 2010Q2

REPORT INFORMATION
  Report Type: 
  Country: None (occurrence: None)
  Receive Date: 20100524
  Receipt Date: 20100511
  Transmission Date: 20101027
  Serious: Yes (Other)
  Sender: FDA-Public Use
  Company Number: PHHY2010MX30709

PATIENT
  Age: 84 Year
  Sex: Female

DRUGS (1)
  1. ACLASTA [Suspect]
     Indication: OSTEOPOROSIS
     Dosage: 5 MG/100ML
     Route: 042
     Dates: start: 20091110

REACTIONS (9)
  - ABDOMINAL PAIN [None]
  - COLITIS [None]
  - COUGH [None]
  - DIARRHOEA [None]
  - INFLUENZA [None]
  - PAIN [None]
  - PYREXIA [None]
  - RHINORRHOEA [None]
  - TACHYCARDIA [None]
